FAERS Safety Report 7118021-7 (Version None)
Quarter: 2010Q4

REPORT INFORMATION
  Report Type: 
  Country: None (occurrence: None)
  Receive Date: 20101123
  Receipt Date: 20101115
  Transmission Date: 20110411
  Serious: Yes (Hospitalization)
  Sender: FDA-Public Use
  Company Number: AU-JNJFOC-20100203599

PATIENT
  Sex: Male

DRUGS (7)
  1. REMICADE [Suspect]
     Indication: CROHN'S DISEASE
     Route: 042
  2. REMICADE [Suspect]
     Route: 042
  3. REMICADE [Suspect]
     Route: 042
  4. IMURAN [Concomitant]
  5. PREDNISONE [Concomitant]
     Dosage: WILL BE REDUCED TO 5 MG/DAY NEXT MONTH
  6. MULTI-VITAMINS [Concomitant]
  7. VITAMIN B-12 [Concomitant]

REACTIONS (7)
  - ABDOMINAL DISTENSION [None]
  - DIZZINESS [None]
  - INTESTINAL FUNCTIONAL DISORDER [None]
  - INTESTINAL OBSTRUCTION [None]
  - INTESTINAL STENOSIS [None]
  - LETHARGY [None]
  - SKIN DISCOLOURATION [None]
